FAERS Safety Report 6393297-2 (Version None)
Quarter: 2009Q4

REPORT INFORMATION
  Report Type: 
  Country: None (occurrence: None)
  Receive Date: 20091008
  Receipt Date: 20090924
  Transmission Date: 20100525
  Serious: Yes (Hospitalization)
  Sender: FDA-Public Use
  Company Number: PHHY2009FR42893

PATIENT
  Sex: Female

DRUGS (14)
  1. NISISCO [Suspect]
     Indication: HYPERTENSION
     Dosage: 1 DF, QD
     Route: 048
     Dates: start: 20090301, end: 20090830
  2. ALDACTAZIDE [Suspect]
     Dosage: 0.5 DF, UNK
     Route: 048
  3. GLUCOPHAGE [Concomitant]
     Dosage: 3 G, QD
     Dates: end: 20090830
  4. NOVONORM [Concomitant]
     Dosage: 2 MG, TID
     Dates: end: 20090830
  5. TAHOR [Concomitant]
     Dosage: 10 MG, QD
     Dates: end: 20090830
  6. TERCIAN [Concomitant]
     Dosage: 12.5 MG, QD
     Dates: end: 20090830
  7. ZOLPIDEM [Concomitant]
     Dosage: 10 MG, QD
     Dates: end: 20090830
  8. PAROXETINE [Concomitant]
     Dosage: 1 DF, QD
     Dates: end: 20090830
  9. ALPRAZOLAM [Concomitant]
     Dosage: 0.5 MG, QD
     Dates: end: 20090830
  10. CORGARD [Concomitant]
     Dosage: 80 MG, BID
     Dates: end: 20090830
  11. EFFERALGAN [Concomitant]
  12. TRANSIPEG [Concomitant]
  13. AMLODIPINE [Concomitant]
     Dosage: 10 MG, QD
     Dates: start: 20090301
  14. TANGANIL [Concomitant]
     Dosage: UNK
     Dates: end: 20090701

REACTIONS (10)
  - ANURIA [None]
  - DIABETES MELLITUS INADEQUATE CONTROL [None]
  - DYSPNOEA [None]
  - FIBRIN D DIMER INCREASED [None]
  - HYPERKALAEMIA [None]
  - HYPOTENSION [None]
  - MALAISE [None]
  - RENAL FAILURE ACUTE [None]
  - SINUS BRADYCARDIA [None]
  - VOMITING [None]
